FAERS Safety Report 4383090-4 (Version None)
Quarter: 2004Q2

REPORT INFORMATION
  Report Type: 
  Country: None (occurrence: None)
  Receive Date: 20040618
  Receipt Date: 20040608
  Transmission Date: 20050107
  Serious: Yes (Death)
  Sender: FDA-Public Use
  Company Number: 04P-087-0263171-00

PATIENT
  Age: 37 Year
  Sex: Male
  Weight: 92 kg

DRUGS (3)
  1. SEVOFLURANE [Suspect]
     Indication: ANAESTHESIA
     Dosage: ONCE, INHALATION
     Route: 055
  2. NITROUS OXIDE [Concomitant]
  3. PROPOFOL [Concomitant]

REACTIONS (10)
  - ANURIA [None]
  - C-REACTIVE PROTEIN INCREASED [None]
  - CARDIOPULMONARY FAILURE [None]
  - DIARRHOEA [None]
  - HAEMODIALYSIS [None]
  - HAEMORRHAGE [None]
  - PYREXIA [None]
  - RENAL FAILURE ACUTE [None]
  - RESPIRATORY ARREST [None]
  - RHABDOMYOLYSIS [None]
